FAERS Safety Report 7194045-9 (Version None)
Quarter: 2010Q4

REPORT INFORMATION
  Report Type: 
  Country: None (occurrence: None)
  Receive Date: 20101223
  Receipt Date: 20100915
  Transmission Date: 20110411
  Serious: No
  Sender: FDA-Public Use
  Company Number: US-AMGEN-TCS430744

PATIENT

DRUGS (6)
  1. ENBREL [Suspect]
     Indication: RHEUMATOID ARTHRITIS
     Dosage: 50 MG, QWK
     Route: 058
     Dates: start: 20070215
  2. BUTALBITAL [Concomitant]
     Dosage: UNK UNK, UNK
     Route: 048
  3. METHOTREXATE [Concomitant]
     Indication: RHEUMATOID ARTHRITIS
     Dosage: 20 MG, QWK
     Route: 048
  4. FLUOXETINE HYDROCHLORIDE [Concomitant]
     Dosage: UNK UNK, UNK
     Route: 048
  5. CALCIUM [Concomitant]
     Dosage: UNK UNK, UNK
     Route: 048
  6. FISH OIL [Concomitant]
     Dosage: UNK UNK, UNK
     Route: 048

REACTIONS (2)
  - IMPAIRED HEALING [None]
  - PARONYCHIA [None]
